FAERS Safety Report 6877162-X (Version None)
Quarter: 2010Q3

REPORT INFORMATION
  Report Type: 
  Country: None (occurrence: None)
  Receive Date: 20100727
  Receipt Date: 20100727
  Transmission Date: 20110219
  Serious: No
  Sender: FDA-Public Use
  Company Number: None

PATIENT
  Age: 42 Year
  Sex: Female
  Weight: 72.5755 kg

DRUGS (1)
  1. NEURONTIN [Suspect]

REACTIONS (5)
  - FEELING DRUNK [None]
  - JUDGEMENT IMPAIRED [None]
  - SOMNAMBULISM [None]
  - SOMNOLENCE [None]
  - VISION BLURRED [None]
